FAERS Safety Report 5255962-X (Version None)
Quarter: 2007Q1

REPORT INFORMATION
  Report Type: 
  Country: None (occurrence: None)
  Receive Date: 20070306
  Receipt Date: 20070221
  Transmission Date: 20070707
  Serious: Yes (Hospitalization)
  Sender: FDA-Public Use
  Company Number: US-ELI_LILLY_AND_COMPANY-US200702004413

PATIENT
  Age: 74 Year
  Sex: Female

DRUGS (2)
  1. FORTEO [Suspect]
     Indication: OSTEOPOROSIS
     Dates: start: 20051121
  2. MACRODANTIN [Concomitant]
     Indication: INFECTION PROPHYLAXIS

REACTIONS (6)
  - BACK PAIN [None]
  - CYSTITIS [None]
  - HERPES ZOSTER [None]
  - JOINT SWELLING [None]
  - NERVOUS SYSTEM DISORDER [None]
  - OVARIAN CYST [None]
